FAERS Safety Report 17785983 (Version 3)
Quarter: 2020Q3

REPORT INFORMATION
  Report Type: Spontaneous
  Country: US (occurrence: US)
  Receive Date: 20200513
  Receipt Date: 20200713
  Transmission Date: 20201102
  Serious: No
  Sender: FDA-Public Use
  Company Number: US-LEXICON PHARMACEUTICALS, INC-20-1606-00360

PATIENT
  Age: 74 Year
  Sex: Female

DRUGS (1)
  1. XERMELO [Suspect]
     Active Substance: TELOTRISTAT ETHYL
     Indication: CARCINOID SYNDROME
     Dates: start: 20200316

REACTIONS (7)
  - Flushing [Not Recovered/Not Resolved]
  - Product dose omission issue [Recovered/Resolved]
  - Neuropathy peripheral [Not Recovered/Not Resolved]
  - Flatulence [Not Recovered/Not Resolved]
  - Constipation [Recovered/Resolved]
  - Blood pressure increased [Not Recovered/Not Resolved]
  - Oropharyngeal pain [Recovering/Resolving]
